FAERS Safety Report 5705193-1 (Version None)
Quarter: 2008Q2

REPORT INFORMATION
  Report Type: 
  Country: None (occurrence: None)
  Receive Date: 20080403
  Receipt Date: 20080318
  Transmission Date: 20081010
  Serious: Yes (Other)
  Sender: FDA-Public Use
  Company Number: AEUSA200700145

PATIENT
  Age: 38 Year
  Sex: Female
  Weight: 100 kg

DRUGS (18)
  1. IMMUNE GLOBULIN INTRAVENOUS (HUMAN)) GAMUNEX [Suspect]
     Indication: IMMUNODEFICIENCY COMMON VARIABLE
     Dosage: 40 GM,Q3W;IV
     Route: 042
     Dates: start: 20070408
  2. MORPHINE [Concomitant]
  3. PROMETHAZINE [Concomitant]
  4. METHOCARBAMOL [Concomitant]
  5. ALPRAZOLAM [Concomitant]
  6. PHENYTEK [Concomitant]
  7. KEPPRA [Concomitant]
  8. TEMAZEPAM [Concomitant]
  9. OXYCODONE AND ACETAMINOPHEN [Concomitant]
  10. ADVAIR HFA [Concomitant]
  11. ALBUTEROL [Concomitant]
  12. ASPIRIN [Concomitant]
  13. ALLEGRA /01314202/ [Concomitant]
  14. SERTRALINE [Concomitant]
  15. FLONASE [Concomitant]
  16. VARIOUS EYE DROPS [Concomitant]
  17. BENADRYL /01563701/ [Concomitant]
  18. OTOLOGICALS [Concomitant]

REACTIONS (4)
  - EYE SWELLING [None]
  - HYPERSENSITIVITY [None]
  - INFLUENZA LIKE ILLNESS [None]
  - OCULAR DISCOMFORT [None]
